FAERS Safety Report 5118528-8 (Version None)
Quarter: 2006Q4

REPORT INFORMATION
  Report Type: 
  Country: None (occurrence: None)
  Receive Date: 20061002
  Receipt Date: 20060918
  Transmission Date: 20070319
  Serious: Yes (Hospitalization)
  Sender: FDA-Public Use
  Company Number: PHRM2006FR02605

PATIENT
  Age: 79 Year
  Sex: Female

DRUGS (2)
  1. TEMODAL [Concomitant]
     Route: 048
     Dates: start: 20060811, end: 20060815
  2. TRILEPTAL [Suspect]
     Dosage: UNK, UNK
     Route: 048
     Dates: start: 20060701, end: 20060822

REACTIONS (6)
  - ACUTE GENERALISED EXANTHEMATOUS PUSTULOSIS [None]
  - C-REACTIVE PROTEIN INCREASED [None]
  - CYTOLYTIC HEPATITIS [None]
  - GAMMA-GLUTAMYLTRANSFERASE INCREASED [None]
  - NORMOCHROMIC NORMOCYTIC ANAEMIA [None]
  - RASH MORBILLIFORM [None]
